FAERS Safety Report 5994266-4 (Version None)
Quarter: 2008Q4

REPORT INFORMATION
  Report Type: 
  Country: None (occurrence: None)
  Receive Date: 20081210
  Receipt Date: 20081203
  Transmission Date: 20090506
  Serious: Yes (Hospitalization)
  Sender: FDA-Public Use
  Company Number: 2008SP023615

PATIENT
  Age: 51 Year
  Sex: Female

DRUGS (5)
  1. PEGATRON (PEGINTERFERON ALFA-2B W/RIBAVIRIN) (PEGYLATED INTERFERON ALF [Suspect]
     Indication: HEPATITIS C
     Dosage: 0.45 ML; 400 MG, QAM; 600 MG; HS;
     Dates: start: 20080612
  2. PEGATRON (PEGINTERFERON ALFA-2B W/RIBAVIRIN) (PEGYLATED INTERFERON ALF [Suspect]
     Indication: HEPATITIS C
     Dosage: 0.45 ML; 400 MG, QAM; 600 MG; HS;
     Dates: start: 20080612
  3. PEGATRON (PEGINTERFERON ALFA-2B W/RIBAVIRIN) (PEGYLATED INTERFERON ALF [Suspect]
     Indication: HEPATITIS C
     Dosage: 0.45 ML; 400 MG, QAM; 600 MG; HS;
     Dates: start: 20080612
  4. ZOLOFT [Concomitant]
  5. OROXINE [Concomitant]

REACTIONS (1)
  - CHOLELITHIASIS [None]
